FAERS Safety Report 7774627-3 (Version None)
Quarter: 2011Q3

REPORT INFORMATION
  Report Type: 
  Country: None (occurrence: None)
  Receive Date: 20110923
  Receipt Date: 20110916
  Transmission Date: 20111222
  Serious: Yes (Death, Hospitalization)
  Sender: FDA-Public Use
  Company Number: GB-ROCHE-803041

PATIENT
  Age: 46 Year
  Sex: Female

DRUGS (2)
  1. MYCOPHENOLATE MOFETIL [Suspect]
     Indication: IMMUNOSUPPRESSION
     Dosage: DOSE REDUCED.
     Route: 065
  2. CYCLOSPORINE [Suspect]
     Indication: IMMUNOSUPPRESSION
     Dosage: DOSE REDUCED.
     Route: 065

REACTIONS (2)
  - ACUTE HEPATIC FAILURE [None]
  - ADENOVIRAL HEPATITIS [None]
